FAERS Safety Report 10528279 (Version 2)
Quarter: 2014Q4

REPORT INFORMATION
  Report Type: Spontaneous
  Country: US (occurrence: US)
  Receive Date: 20141020
  Receipt Date: 20141112
  Transmission Date: 20150528
  Serious: Yes (Other)
  Sender: FDA-Public Use
  Company Number: US-JNJFOC-20141010212

PATIENT
  Age: 60 Year
  Sex: Male
  Weight: 69 kg

DRUGS (16)
  1. HEMAX [Concomitant]
  2. LYRICA [Concomitant]
     Active Substance: PREGABALIN
  3. IMBRUVICA [Suspect]
     Active Substance: IBRUTINIB
     Indication: CHRONIC LYMPHOCYTIC LEUKAEMIA
     Route: 048
     Dates: start: 20140724, end: 20140911
  4. ALEVE [Concomitant]
     Active Substance: NAPROXEN SODIUM
  5. GLIPIZIDE. [Concomitant]
     Active Substance: GLIPIZIDE
  6. IVIGLOB EX [Concomitant]
     Active Substance: HUMAN IMMUNOGLOBULIN G
  7. ZYLOPRIM [Concomitant]
     Active Substance: ALLOPURINOL
  8. DURAGESIC [Concomitant]
     Active Substance: FENTANYL
  9. PERCOCET [Concomitant]
     Active Substance: ACETAMINOPHEN\OXYCODONE HYDROCHLORIDE
  10. FOLIC ACID. [Concomitant]
     Active Substance: FOLIC ACID
  11. OXYCODONE [Concomitant]
     Active Substance: OXYCODONE
  12. RESTORIL [Concomitant]
     Active Substance: TEMAZEPAM
  13. PROCARDIA [Concomitant]
     Active Substance: NIFEDIPINE
  14. LOPID [Concomitant]
     Active Substance: GEMFIBROZIL
  15. XANAX [Concomitant]
     Active Substance: ALPRAZOLAM
  16. GLUCOPHAGE [Concomitant]
     Active Substance: METFORMIN HYDROCHLORIDE

REACTIONS (2)
  - Disease progression [Not Recovered/Not Resolved]
  - Lung neoplasm malignant [Not Recovered/Not Resolved]

NARRATIVE: CASE EVENT DATE: 2014
